FAERS Safety Report 13724507 (Version 1)
Quarter: 2017Q3

REPORT INFORMATION
  Report Type: Spontaneous
  Country: US (occurrence: US)
  Receive Date: 20170706
  Receipt Date: 20170706
  Transmission Date: 20171127
  Serious: No
  Sender: FDA-Public Use
  Company Number: US-SILVERGATE PHARMACEUTICALS, INC.-2017SIL00003

PATIENT
  Sex: Male

DRUGS (1)
  1. EPANED [Suspect]
     Active Substance: ENALAPRIL MALEATE

REACTIONS (1)
  - Hypersensitivity [Unknown]
